APPROVED DRUG PRODUCT: FLOXURIDINE
Active Ingredient: FLOXURIDINE
Strength: 500MG/VIAL
Dosage Form/Route: INJECTABLE;INJECTION
Application: A203008 | Product #001
Applicant: AMERICAN REGENT INC
Approved: Nov 22, 2017 | RLD: No | RS: No | Type: DISCN